FAERS Safety Report 4292460-4 (Version None)
Quarter: 2004Q1

REPORT INFORMATION
  Report Type: 
  Country: None (occurrence: None)
  Receive Date: 20040126
  Receipt Date: 20031113
  Transmission Date: 20041129
  Serious: Yes (Other)
  Sender: FDA-Public Use
  Company Number: USA031152479

PATIENT
  Age: 76 Year
  Sex: Female
  Weight: 76 kg

DRUGS (7)
  1. FORTEO [Suspect]
     Indication: OSTEOPOROSIS
     Dosage: 20 UG/DAY
     Dates: start: 20030701, end: 20031101
  2. LORTAB [Concomitant]
  3. NORVASC [Concomitant]
  4. BENICAR (BENICAR) [Concomitant]
  5. ISOSORBIDE [Concomitant]
  6. NEXIUM [Concomitant]
  7. CALCIUM WITH VITAMIN D [Concomitant]

REACTIONS (7)
  - ANOREXIA [None]
  - BONE DISORDER [None]
  - BONE NEOPLASM [None]
  - NAUSEA [None]
  - PAIN IN EXTREMITY [None]
  - SPINAL COMPRESSION FRACTURE [None]
  - WEIGHT DECREASED [None]
